FAERS Safety Report 9625137 (Version 1)
Quarter: 2013Q4

REPORT INFORMATION
  Report Type: Report from Study
  Country: CA (occurrence: CA)
  Receive Date: 20131016
  Receipt Date: 20131016
  Transmission Date: 20140711
  Serious: Yes (Life-Threatening)
  Sender: FDA-Public Use
  Company Number: CA-JNJFOC-20131007735

PATIENT
  Age: 20 Year
  Sex: Male
  Weight: 80.1 kg

DRUGS (8)
  1. REMICADE [Suspect]
     Indication: COLITIS ULCERATIVE
     Dosage: 15TH INFUSION
     Route: 042
     Dates: start: 20131009
  2. REMICADE [Suspect]
     Indication: COLITIS ULCERATIVE
     Route: 042
     Dates: start: 20120222
  3. WARFARIN [Concomitant]
     Route: 065
  4. MARIJUANA [Concomitant]
     Route: 065
  5. MEZAVANT [Concomitant]
     Route: 065
  6. CALCIUM [Concomitant]
     Route: 065
  7. MAGNESIUM [Concomitant]
     Route: 065
  8. GALLEXIER [Concomitant]
     Route: 065

REACTIONS (3)
  - Pulmonary embolism [Not Recovered/Not Resolved]
  - International normalised ratio decreased [Not Recovered/Not Resolved]
  - Feeling of body temperature change [Not Recovered/Not Resolved]
